FAERS Safety Report 17850509 (Version 1)
Quarter: 2020Q2

REPORT INFORMATION
  Report Type: Spontaneous
  Country: US (occurrence: US)
  Receive Date: 20200602
  Receipt Date: 20200602
  Transmission Date: 20200714
  Serious: No
  Sender: FDA-Public Use
  Company Number: US-PFIZER INC-2020214943

PATIENT

DRUGS (1)
  1. LORAZEPAM. [Suspect]
     Active Substance: LORAZEPAM
     Indication: SLEEP DISORDER
     Dosage: 0.5 MG (PRESCRIBED 2 MG BUT CUT IN IN 4 AND TAKE .05/ONLY TAKE IT BEFORE I GO TO BED)

REACTIONS (2)
  - Weight increased [Unknown]
  - Intentional product misuse [Unknown]
